FAERS Safety Report 9748830 (Version 2)
Quarter: 2013Q4

REPORT INFORMATION
  Report Type: Spontaneous
  Country: US (occurrence: US)
  Receive Date: 20131212
  Receipt Date: 20131212
  Transmission Date: 20140711
  Serious: No
  Sender: FDA-Public Use
  Company Number: US-INCYTE CORPORATION-2013IN001766

PATIENT
  Age: 57 Year
  Sex: Female

DRUGS (20)
  1. JAKAFI [Suspect]
     Indication: POLYCYTHAEMIA VERA
     Dosage: 10 MG, BID
     Route: 048
     Dates: start: 201304
  2. NEURONTIN [Concomitant]
  3. IMDUR ER [Concomitant]
  4. BUSPIRONE HCL [Concomitant]
  5. MELOXICAM [Concomitant]
  6. ASPIRIN [Concomitant]
     Dosage: 81 MG
  7. METOPROLOL SUCC ER [Concomitant]
  8. DOCUSATE SODIUM [Concomitant]
  9. SUDAFED [Concomitant]
  10. GUAIFENESIN [Concomitant]
  11. LORATADIN [Concomitant]
  12. CVS VITAMIN E [Concomitant]
  13. MAGNESIUM [Concomitant]
  14. GLUCOSAMINE /CHOND [Concomitant]
  15. FISH OIL [Concomitant]
     Dosage: 1200 MG
  16. LUTEIN [Concomitant]
  17. VITAMIN D3 [Concomitant]
  18. B COMPLEX CAP [Concomitant]
  19. MULTIVITAMIN [Concomitant]
  20. LUVOX CR [Concomitant]

REACTIONS (12)
  - Flatulence [Unknown]
  - Inflammation [Unknown]
  - Discomfort [Unknown]
  - Dysstasia [Unknown]
  - Haematocrit decreased [Unknown]
  - Haemoglobin decreased [Unknown]
  - Fatigue [Unknown]
  - Thirst [Unknown]
  - Pain [Unknown]
  - Anxiety [Unknown]
  - Depression [Unknown]
  - Medication error [Unknown]
